FAERS Safety Report 5376345-8 (Version None)
Quarter: 2007Q3

REPORT INFORMATION
  Report Type: 
  Country: None (occurrence: None)
  Receive Date: 20070702
  Receipt Date: 20070626
  Transmission Date: 20080115
  Serious: Yes (Other)
  Sender: FDA-Public Use
  Company Number: DE-PFIZER INC-2007053009

PATIENT
  Sex: Female

DRUGS (2)
  1. ZELDOX (CAPSULES) [Suspect]
     Indication: PSYCHOTIC DISORDER
     Route: 048
  2. HALOPERIDOL [Suspect]
     Indication: PSYCHOTIC DISORDER

REACTIONS (3)
  - DISORIENTATION [None]
  - DISSOCIATION [None]
  - MEMORY IMPAIRMENT [None]
